FAERS Safety Report 4386902-3 (Version None)
Quarter: 2004Q2

REPORT INFORMATION
  Report Type: 
  Country: None (occurrence: None)
  Receive Date: 20040630
  Receipt Date: 20040622
  Transmission Date: 20050107
  Serious: Yes (Death, Hospitalization)
  Sender: FDA-Public Use
  Company Number: 200416375GDDC

PATIENT
  Age: 30 Year
  Sex: Male

DRUGS (4)
  1. TAXOTERE [Suspect]
     Indication: GASTRIC CANCER
     Route: 042
     Dates: start: 20020102, end: 20020102
  2. EPIRUBICIN [Suspect]
     Indication: GASTRIC CANCER
     Route: 042
     Dates: start: 20020102, end: 20020102
  3. TROPISETRON [Concomitant]
     Indication: VOMITING
     Route: 042
     Dates: start: 20020102, end: 20020102
  4. ATIVAN [Concomitant]
     Indication: SEDATION
     Route: 042
     Dates: start: 20020102, end: 20020102

REACTIONS (4)
  - ASTHENIA [None]
  - CARDIO-RESPIRATORY ARREST [None]
  - RESPIRATORY FAILURE [None]
  - SEPTIC SHOCK [None]
